FAERS Safety Report 7053301-5 (Version None)
Quarter: 2010Q4

REPORT INFORMATION
  Report Type: 
  Country: None (occurrence: None)
  Receive Date: 20101020
  Receipt Date: 20101012
  Transmission Date: 20110411
  Serious: Yes (Other)
  Sender: FDA-Public Use
  Company Number: PHHO2010IT15824

PATIENT
  Sex: Female
  Weight: 77 kg

DRUGS (1)
  1. ZOLEDRONATE T29581+SOLINJ+BM [Suspect]
     Indication: METASTASES TO BONE
     Dosage: UNK
     Dates: start: 20100129, end: 20100618

REACTIONS (2)
  - ORAL SURGERY [None]
  - OSTEONECROSIS OF JAW [None]
